FAERS Safety Report 12251981 (Version 3)
Quarter: 2016Q2

REPORT INFORMATION
  Report Type: Not Available
  Country: CH (occurrence: CH)
  Receive Date: 20160411
  Receipt Date: 20160509
  Transmission Date: 20160815
  Serious: Yes (Death)
  Sender: FDA-Public Use
  Company Number: CH-BEH-2016060859

PATIENT
  Age: 81 Year
  Sex: Male

DRUGS (11)
  1. VOKANAMENT [Concomitant]
     Dosage: STRENGTH: 850MG/50MG
     Route: 048
  2. MARCOUMAR 3 MG [Suspect]
     Active Substance: PHENPROCOUMON
     Indication: ATRIAL FIBRILLATION
     Route: 048
     Dates: end: 20160313
  3. CYKLOKAPRON [Suspect]
     Active Substance: TRANEXAMIC ACID
     Indication: SHOCK HAEMORRHAGIC
     Route: 041
     Dates: start: 20160313, end: 20160313
  4. DIGOXIN. [Concomitant]
     Active Substance: DIGOXIN
     Route: 048
  5. DIAMICRON MR [Concomitant]
     Active Substance: GLICLAZIDE
     Dosage: STRENGTH: 30MG
     Route: 048
  6. COVERSUM N [Concomitant]
     Active Substance: PERINDOPRIL
     Dosage: STRENGTH: 10MG
     Route: 048
  7. BERIPLEX P/N [Suspect]
     Active Substance: COAGULATION FACTOR IX HUMAN\COAGULATION FACTOR VII HUMAN\COAGULATION FACTOR X HUMAN\PROTEIN C\PROTEIN S HUMAN\PROTHROMBIN
     Indication: GASTROINTESTINAL HAEMORRHAGE
     Route: 041
     Dates: start: 20160313, end: 20160313
  8. BERIPLEX P/N [Suspect]
     Active Substance: COAGULATION FACTOR IX HUMAN\COAGULATION FACTOR VII HUMAN\COAGULATION FACTOR X HUMAN\PROTEIN C\PROTEIN S HUMAN\PROTHROMBIN
     Indication: PROCOAGULANT THERAPY
     Route: 041
     Dates: start: 20160313, end: 20160313
  9. SANDOSTATIN [Concomitant]
     Active Substance: OCTREOTIDE ACETATE
  10. CONCOR [Concomitant]
     Active Substance: BISOPROLOL FUMARATE
     Dosage: STRENGTH: 5MG
     Route: 048
  11. PANTOZOL [Concomitant]
     Active Substance: PANTOPRAZOLE SODIUM
     Route: 042

REACTIONS (13)
  - Drug interaction [Fatal]
  - Shock haemorrhagic [Fatal]
  - Mediastinal shift [Fatal]
  - Ischaemic stroke [Fatal]
  - Nervous system disorder [Fatal]
  - Aphasia [Fatal]
  - Hemiparesis [Fatal]
  - Cerebral ischaemia [Fatal]
  - Hypertension [Fatal]
  - Oxygen saturation decreased [Fatal]
  - Circumstance or information capable of leading to medication error [Fatal]
  - Altered state of consciousness [Fatal]
  - Atelectasis [Fatal]

NARRATIVE: CASE EVENT DATE: 20160313
